FAERS Safety Report 6680859-8 (Version None)
Quarter: 2010Q2

REPORT INFORMATION
  Report Type: 
  Country: None (occurrence: None)
  Receive Date: 20100413
  Receipt Date: 20100413
  Transmission Date: 20101027
  Serious: Yes (Life-Threatening, Hospitalization)
  Sender: FDA-Public Use
  Company Number: None

PATIENT
  Age: 50 Year
  Sex: Male
  Weight: 102.0593 kg

DRUGS (1)
  1. XOLAIR [Suspect]
     Indication: ASTHMA
     Dosage: INJECTIONS ONCE SQ
     Route: 058
     Dates: start: 20071007, end: 20071007

REACTIONS (8)
  - AMNESIA [None]
  - CHILLS [None]
  - IMMUNOSUPPRESSION [None]
  - MALAISE [None]
  - MENINGITIS CRYPTOCOCCAL [None]
  - NERVOUS SYSTEM DISORDER [None]
  - PYREXIA [None]
  - VOMITING [None]
